FAERS Safety Report 4804974-6 (Version None)
Quarter: 2005Q4

REPORT INFORMATION
  Report Type: 
  Country: None (occurrence: None)
  Receive Date: 20051012
  Receipt Date: 20051004
  Transmission Date: 20060501
  Serious: Yes (Hospitalization)
  Sender: FDA-Public Use
  Company Number: 003-025

PATIENT
  Age: 46 Year
  Sex: Male

DRUGS (1)
  1. CROFAB [Suspect]
     Indication: SNAKE BITE
     Dosage: 20 VIALS IV OVER 24 HRS
     Route: 042

REACTIONS (2)
  - SWELLING [None]
  - THROMBOCYTOPENIA [None]
